FAERS Safety Report 18367643 (Version 1)
Quarter: 2020Q4

REPORT INFORMATION
  Report Type: Not Available
  Country: US (occurrence: US)
  Receive Date: 20201009
  Receipt Date: 20201009
  Transmission Date: 20210114
  Serious: No
  Sender: FDA-Public Use
  Company Number: US-C B FLEET CO INC-202001-US-000405

PATIENT
  Age: 33 Year
  Sex: Female

DRUGS (1)
  1. MONISTAT 7 COMBINATION PACK 7-DAY PRE-FILLED APPLICATORS [Suspect]
     Active Substance: MICONAZOLE NITRATE
     Indication: FUNGAL INFECTION
     Dosage: USED 2 DAYS, INTERNAL AND EXTERNAL CREAM

REACTIONS (4)
  - Vulvovaginal pain [Not Recovered/Not Resolved]
  - Vulvovaginal inflammation [Not Recovered/Not Resolved]
  - Vulvovaginal swelling [Not Recovered/Not Resolved]
  - Condition aggravated [Not Recovered/Not Resolved]
